FAERS Safety Report 4842871-0 (Version None)
Quarter: 2005Q4

REPORT INFORMATION
  Report Type: 
  Country: None (occurrence: None)
  Receive Date: 20051201
  Receipt Date: 20050905
  Transmission Date: 20060501
  Serious: Yes (Disabling)
  Sender: FDA-Public Use
  Company Number: PHNR2005AU01351

PATIENT
  Age: 88 Year
  Sex: Female

DRUGS (2)
  1. DESFERAL [Suspect]
     Indication: MYELODYSPLASTIC SYNDROME
     Dosage: 5 G OVER 5 DAYS/WEEK
     Dates: start: 20041129, end: 20050110
  2. TRANEXAMIC ACID [Concomitant]

REACTIONS (5)
  - EMOTIONAL DISTRESS [None]
  - INJECTION SITE ABSCESS [None]
  - INJECTION SITE INFLAMMATION [None]
  - INJECTION SITE PAIN [None]
  - INJECTION SITE REACTION [None]
